FAERS Safety Report 9891418 (Version 1)
Quarter: 2014Q1

REPORT INFORMATION
  Report Type: Spontaneous
  Country: US (occurrence: US)
  Receive Date: 20140212
  Receipt Date: 20140212
  Transmission Date: 20141002
  Serious: No
  Sender: FDA-Public Use
  Company Number: US-PFIZER INC-2014037290

PATIENT
  Age: 44 Year
  Sex: Male
  Weight: 126.98 kg

DRUGS (9)
  1. VIAGRA [Suspect]
     Indication: ERECTILE DYSFUNCTION
     Dosage: 100 MG, AS NEEDED
     Route: 048
     Dates: start: 201312
  2. GABAPENTIN [Concomitant]
     Dosage: 600 MG (TAKING 2 ORAL CAPSULES OF 300MG), 3X/DAY
     Route: 048
  3. ACETAMINOPHEN W/HYDROCODONE BITARTRATE [Concomitant]
     Dosage: 10/325 ONE TABLET, AS NEEDED
     Route: 048
  4. VISTARIL [Concomitant]
     Indication: ANXIETY
     Dosage: 50 MG, AS NEEDED
     Route: 048
  5. CLONAZEPAM [Concomitant]
     Dosage: 0.5 MG, AS NEEDED
     Route: 048
  6. DICLOFENAC [Concomitant]
     Dosage: 75 MG, 2X/DAY
     Route: 048
  7. TRAMADOL [Concomitant]
     Dosage: 50 MG, AS NEEDED
     Route: 048
  8. ATORVASTATIN [Concomitant]
     Dosage: 10 MG, 1X/DAY
     Route: 048
  9. ZOLOFT [Concomitant]
     Dosage: 100 MG, UNK

REACTIONS (1)
  - Drug ineffective [Unknown]
